FAERS Safety Report 6093923-1 (Version None)
Quarter: 2009Q1

REPORT INFORMATION
  Report Type: 
  Country: None (occurrence: None)
  Receive Date: 20090226
  Receipt Date: 20090218
  Transmission Date: 20090719
  Serious: Yes (Life-Threatening, Hospitalization)
  Sender: FDA-Public Use
  Company Number: A0746172A

PATIENT
  Age: 67 Year
  Sex: Female
  Weight: 62.8 kg

DRUGS (1)
  1. ROSIGLITAZONE MALEATE AND METFORMIN HCL [Suspect]
     Route: 048
     Dates: start: 20071101

REACTIONS (6)
  - CARDIAC FAILURE CONGESTIVE [None]
  - COUGH [None]
  - DYSPNOEA [None]
  - ELECTROCARDIOGRAM REPOLARISATION ABNORMALITY [None]
  - LEFT VENTRICULAR FAILURE [None]
  - PULMONARY CONGESTION [None]
